FAERS Safety Report 5157712-4 (Version None)
Quarter: 2006Q4

REPORT INFORMATION
  Report Type: 
  Country: None (occurrence: None)
  Receive Date: 20061127
  Receipt Date: 20061116
  Transmission Date: 20070319
  Serious: Yes (Hospitalization)
  Sender: FDA-Public Use
  Company Number: US-SANOFI-SYNTHELABO-F01200602344

PATIENT
  Sex: Female
  Weight: 56.6 kg

DRUGS (11)
  1. MULTI-VITAMIN [Concomitant]
  2. ZOCOR [Concomitant]
     Dosage: UNK
     Route: 065
     Dates: start: 20061103
  3. PRILOSEC [Concomitant]
  4. SYNTHROID [Concomitant]
  5. ACCUPRIL [Concomitant]
  6. CLONIDINE [Concomitant]
  7. METOPROLOL [Concomitant]
  8. NORVASC [Concomitant]
  9. ASPIRIN [Concomitant]
     Dosage: UNK
     Route: 065
     Dates: start: 20061103
  10. CLOPIDOGREL [Suspect]
     Dosage: UNK
     Dates: start: 20061102, end: 20061104
  11. CLOPIDOGREL [Suspect]
     Dosage: UNK
     Route: 065
     Dates: start: 20061106

REACTIONS (4)
  - COLITIS ISCHAEMIC [None]
  - HAEMATOCRIT DECREASED [None]
  - HAEMOGLOBIN DECREASED [None]
  - PLATELET COUNT INCREASED [None]
